FAERS Safety Report 5498865-8 (Version None)
Quarter: 2007Q4

REPORT INFORMATION
  Report Type: 
  Country: None (occurrence: None)
  Receive Date: 20071026
  Receipt Date: 20070911
  Transmission Date: 20080405
  Serious: No
  Sender: FDA-Public Use
  Company Number: A0666766A

PATIENT
  Age: 60 Year
  Sex: Female

DRUGS (5)
  1. ADVAIR DISKUS 100/50 [Suspect]
     Indication: CHRONIC OBSTRUCTIVE PULMONARY DISEASE
     Dosage: 1PUFF TWICE PER DAY
     Route: 055
     Dates: start: 19970101
  2. ALBUTEROL [Concomitant]
  3. BLOOD PRESSURE MEDICATION [Concomitant]
  4. CELEXA [Concomitant]
  5. NORCO [Concomitant]

REACTIONS (4)
  - ABASIA [None]
  - DYSPNOEA [None]
  - OEDEMA PERIPHERAL [None]
  - PHARMACEUTICAL PRODUCT COMPLAINT [None]
